FAERS Safety Report 7756623-5 (Version None)
Quarter: 2011Q3

REPORT INFORMATION
  Report Type: 
  Country: None (occurrence: None)
  Receive Date: 20110916
  Receipt Date: 20110915
  Transmission Date: 20111222
  Serious: Yes (Death, Other)
  Sender: FDA-Public Use
  Company Number: PHEH2011US03200

PATIENT
  Sex: Male

DRUGS (9)
  1. VITAMIN D [Concomitant]
     Dosage: UNK UKN, UNK
  2. HYDROCHLOROTHIAZIDE [Concomitant]
     Dosage: UNK UKN, UNK
  3. METHADONE HCL [Concomitant]
     Dosage: UNK UKN, UNK
  4. SUTENT [Suspect]
  5. VITAMIN E [Concomitant]
  6. VITAMIN B-12 [Concomitant]
  7. VICODIN [Concomitant]
     Dosage: UNK UKN, UNK
  8. FISH OIL [Concomitant]
     Dosage: UNK UKN, UNK
  9. AFINITOR [Suspect]
     Dosage: 1 DF, QD
     Route: 048
     Dates: start: 20110713

REACTIONS (6)
  - CARDIAC ARREST [None]
  - CARDIAC PROCEDURE COMPLICATION [None]
  - NEOPLASM MALIGNANT [None]
  - BLOOD PRESSURE INCREASED [None]
  - PERICARDIAL EFFUSION [None]
  - NEOPLASM PROGRESSION [None]
